FAERS Safety Report 8458501-5 (Version None)
Quarter: 2012Q2

REPORT INFORMATION
  Report Type: 
  Country: None (occurrence: None)
  Receive Date: 20120622
  Receipt Date: 20120611
  Transmission Date: 20120825
  Serious: Yes (Hospitalization)
  Sender: FDA-Public Use
  Company Number: JP-ELI_LILLY_AND_COMPANY-JP201206003992

PATIENT
  Age: 77 Year
  Sex: Female

DRUGS (12)
  1. FORTEO [Suspect]
     Indication: OSTEOPOROSIS
     Dosage: UNK
     Route: 058
     Dates: start: 20101201
  2. ADJUST-A [Concomitant]
  3. SIGMART [Concomitant]
  4. WARFARIN SODIUM [Concomitant]
  5. DEPAS [Concomitant]
  6. PRAVASTATIN [Concomitant]
  7. ZOLPIDEM [Concomitant]
  8. NITRODERM [Concomitant]
  9. LAXOBERON [Concomitant]
  10. TRAMADOL HCL [Concomitant]
  11. DILTIAZEM HCL [Concomitant]
  12. LASIX [Concomitant]

REACTIONS (3)
  - FEMORAL NECK FRACTURE [None]
  - FALL [None]
  - DRUG INEFFECTIVE [None]
